FAERS Safety Report 5229216-1 (Version None)
Quarter: 2007Q1

REPORT INFORMATION
  Report Type: 
  Country: None (occurrence: None)
  Receive Date: 20061201
  Receipt Date: 20060810
  Transmission Date: 20070707
  Serious: No
  Sender: FDA-Public Use
  Company Number: US200608002412

PATIENT
  Sex: Female

DRUGS (6)
  1. CYMBALTA [Suspect]
     Indication: DEPRESSION
     Dosage: 60 MG, ORAL
     Route: 048
     Dates: start: 20060724
  2. ATIVAN [Concomitant]
  3. KLONOPIN [Concomitant]
  4. NEXIUM /UNK/ (ESOMEPRAZOLE) [Concomitant]
  5. HYDROCODONE (HYDROCODONE) [Concomitant]
  6. ESTRATEST [Concomitant]

REACTIONS (2)
  - APATHY [None]
  - CRYING [None]
